FAERS Safety Report 5077041-7 (Version None)
Quarter: 2006Q3

REPORT INFORMATION
  Report Type: 
  Country: None (occurrence: None)
  Receive Date: 20060810
  Receipt Date: 20060331
  Transmission Date: 20061208
  Serious: Yes (Hospitalization)
  Sender: FDA-Public Use
  Company Number: 2006UW05783

PATIENT
  Age: 15865 Day
  Sex: Female
  Weight: 120.9 kg

DRUGS (11)
  1. SEROQUEL [Suspect]
     Route: 048
  2. VASOTEC [Concomitant]
     Indication: HYPERTENSION
  3. LEXAPRO [Concomitant]
  4. PROTONIX [Concomitant]
  5. GEODON [Concomitant]
  6. TRAZODONE HCL [Concomitant]
  7. HUMULIN 70/30 [Concomitant]
     Dosage: 70/30
  8. HUMULIN 70/30 [Concomitant]
     Dosage: EVENING
  9. BACTRIM DS [Concomitant]
     Dosage: ONE BID X 5 DAYS
     Dates: start: 20050311
  10. GLYBURIDE [Concomitant]
  11. VISTARIL [Concomitant]
     Dosage: PRN

REACTIONS (12)
  - APATHY [None]
  - ASTHENIA [None]
  - DECREASED APPETITE [None]
  - DIABETES MELLITUS [None]
  - HALLUCINATION, AUDITORY [None]
  - HEART RATE INCREASED [None]
  - INSOMNIA [None]
  - INTENTIONAL OVERDOSE [None]
  - PANIC ATTACK [None]
  - SUICIDAL IDEATION [None]
  - SUICIDE ATTEMPT [None]
  - TEARFULNESS [None]
